FAERS Safety Report 12633395 (Version 3)
Quarter: 2016Q3

REPORT INFORMATION
  Report Type: Spontaneous
  Country: US (occurrence: US)
  Receive Date: 20160808
  Receipt Date: 20160822
  Transmission Date: 20161109
  Serious: No
  Sender: FDA-Public Use
  Company Number: US-BEH-2016060704

PATIENT
  Age: 52 Year
  Sex: Female
  Weight: 112.95 kg

DRUGS (22)
  1. ACETAMINOPHEN. [Concomitant]
     Active Substance: ACETAMINOPHEN
  2. HYDROCHLORTHIAZIDE [Concomitant]
     Active Substance: HYDROCHLOROTHIAZIDE
  3. LEVOTHYROXINE. [Concomitant]
     Active Substance: LEVOTHYROXINE
  4. GNP VIT B12 [Concomitant]
  5. METOFORMIN [Concomitant]
  6. BUDESONIDE. [Concomitant]
     Active Substance: BUDESONIDE
  7. VITAMIN D [Concomitant]
     Active Substance: CHOLECALCIFEROL
  8. HIZENTRA [Suspect]
     Active Substance: HUMAN IMMUNOGLOBULIN G
     Dosage: UNK
     Route: 058
     Dates: start: 20141002, end: 20141030
  9. FLONASE [Concomitant]
     Active Substance: FLUTICASONE PROPIONATE
  10. COLACE [Concomitant]
     Active Substance: DOCUSATE SODIUM
  11. ALLEGRA [Concomitant]
     Active Substance: FEXOFENADINE HYDROCHLORIDE
  12. NYSTOP [Concomitant]
     Active Substance: NYSTATIN
  13. DIPHENHYDRAMINE. [Concomitant]
     Active Substance: DIPHENHYDRAMINE
  14. DIFLUCAN [Concomitant]
     Active Substance: FLUCONAZOLE
  15. LOVASTATIN. [Concomitant]
     Active Substance: LOVASTATIN
  16. EPIPEN [Concomitant]
     Active Substance: EPINEPHRINE
  17. NORCO [Concomitant]
     Active Substance: ACETAMINOPHEN\HYDROCODONE BITARTRATE
  18. LANSOPRAZOLE. [Concomitant]
     Active Substance: LANSOPRAZOLE
  19. HIZENTRA [Suspect]
     Active Substance: HUMAN IMMUNOGLOBULIN G
     Indication: IMMUNODEFICIENCY COMMON VARIABLE
     Dosage: 8 G, QW
     Route: 058
     Dates: start: 20141010
  20. GABAPENTIN. [Concomitant]
     Active Substance: GABAPENTIN
  21. LMX [Concomitant]
     Active Substance: LIDOCAINE
  22. TIZANIDINE. [Concomitant]
     Active Substance: TIZANIDINE

REACTIONS (1)
  - Joint swelling [Recovered/Resolved]

NARRATIVE: CASE EVENT DATE: 20141123
